FAERS Safety Report 7761861-1 (Version None)
Quarter: 2011Q3

REPORT INFORMATION
  Report Type: 
  Country: None (occurrence: None)
  Receive Date: 20110920
  Receipt Date: 20110913
  Transmission Date: 20111222
  Serious: Yes (Hospitalization)
  Sender: FDA-Public Use
  Company Number: US-VERTEX PHARMACEUTICALS INC.-AE-2011-001524

PATIENT
  Sex: Female

DRUGS (3)
  1. RIBAVIRIN [Concomitant]
     Indication: HEPATITIS C
     Route: 048
     Dates: start: 20110722, end: 20110912
  2. PEGASYS [Concomitant]
     Indication: HEPATITIS C
     Route: 058
     Dates: start: 20110712, end: 20110912
  3. INCIVEK [Suspect]
     Indication: HEPATITIS C
     Route: 048
     Dates: start: 20110722, end: 20110912

REACTIONS (11)
  - LOSS OF CONSCIOUSNESS [None]
  - FATIGUE [None]
  - HYPOTENSION [None]
  - ANAEMIA [None]
  - DIZZINESS [None]
  - DECREASED APPETITE [None]
  - DEHYDRATION [None]
  - SYNCOPE [None]
  - DIARRHOEA [None]
  - PALLOR [None]
  - FEELING COLD [None]
